FAERS Safety Report 13401573 (Version 5)
Quarter: 2017Q2

REPORT INFORMATION
  Report Type: Spontaneous
  Country: RU (occurrence: RU)
  Receive Date: 20170404
  Receipt Date: 20170526
  Transmission Date: 20170830
  Serious: Yes (Hospitalization)
  Sender: FDA-Public Use
  Company Number: RU-SA-2017SA054716

PATIENT
  Age: 4 Year
  Sex: Female

DRUGS (3)
  1. SOLOSTAR [Concomitant]
     Active Substance: DEVICE
     Indication: TYPE 1 DIABETES MELLITUS
     Dates: start: 20170207, end: 20170323
  2. NOVORAPID [Concomitant]
     Active Substance: INSULIN ASPART
  3. APIDRA SOLOSTAR [Suspect]
     Active Substance: INSULIN GLULISINE
     Indication: TYPE 1 DIABETES MELLITUS
     Route: 058
     Dates: start: 20170207, end: 20170323

REACTIONS (5)
  - Vomiting [Recovered/Resolved]
  - Incorrect product storage [Unknown]
  - Product use issue [Unknown]
  - Hyperglycaemia [Recovered/Resolved]
  - Ketoacidosis [Recovered/Resolved]

NARRATIVE: CASE EVENT DATE: 201702
